FAERS Safety Report 6157599-7 (Version None)
Quarter: 2009Q2

REPORT INFORMATION
  Report Type: 
  Country: None (occurrence: None)
  Receive Date: 20090416
  Receipt Date: 20090406
  Transmission Date: 20091009
  Serious: Yes (Hospitalization)
  Sender: FDA-Public Use
  Company Number: US-WATSON-2009-02329

PATIENT
  Age: 57 Year
  Sex: Male

DRUGS (4)
  1. FLUOROURACIL [Suspect]
     Indication: COLON CANCER
     Dosage: 400 MG/M2, IV PUSH
     Route: 042
     Dates: start: 20080101
  2. FLUOROURACIL [Suspect]
     Dosage: 2400 MG/M2, CONTINUOUS INFUSION
     Route: 042
     Dates: start: 20080101
  3. LEUCOVORIN CALCIUM [Concomitant]
     Indication: COLON CANCER
     Dosage: 400 MG/M2, SINGLE
     Dates: start: 20080101
  4. OXALIPLATIN [Concomitant]
     Indication: COLON CANCER
     Dosage: 85 MG/M2, SINGLE
     Dates: start: 20080101

REACTIONS (2)
  - ARTERIOSPASM CORONARY [None]
  - CARDIAC FAILURE [None]
